FAERS Safety Report 4960865-1 (Version None)
Quarter: 2006Q1

REPORT INFORMATION
  Report Type: 
  Country: None (occurrence: None)
  Receive Date: 20060328
  Receipt Date: 20060316
  Transmission Date: 20060701
  Serious: Yes (Hospitalization)
  Sender: FDA-Public Use
  Company Number: 2005115612

PATIENT
  Age: 36 Year
  Sex: Female
  Weight: 79 kg

DRUGS (2)
  1. VIRACEPT [Suspect]
     Indication: HIV INFECTION
     Dosage: 250 MG, 2 IN 1 D, ORAL
     Route: 048
     Dates: start: 20050305, end: 20050325
  2. COMBIVIR [Suspect]
     Indication: HIV INFECTION
     Dosage: 2 IN 1 D, ORAL
     Route: 048
     Dates: start: 20050305, end: 20050325

REACTIONS (7)
  - ANXIETY [None]
  - ASTHENIA [None]
  - CYTOLYTIC HEPATITIS [None]
  - DIARRHOEA [None]
  - EOSINOPHILIA [None]
  - HEPATITIS CHOLESTATIC [None]
  - INFLAMMATION [None]
